FAERS Safety Report 10090468 (Version 1)
Quarter: 2014Q2

REPORT INFORMATION
  Report Type: Spontaneous
  Country: US (occurrence: US)
  Receive Date: 20140421
  Receipt Date: 20140421
  Transmission Date: 20141212
  Serious: No
  Sender: FDA-Public Use
  Company Number: US-B.I. PHARMACEUTICALS,INC./RIDGEFIELD-2014-BI-16151BP

PATIENT
  Age: 71 Year
  Sex: Male
  Weight: 136 kg

DRUGS (2)
  1. SPIRIVA [Suspect]
     Indication: DYSPNOEA
     Dosage: 18 MCG
     Route: 055
     Dates: start: 2013
  2. SPIRIVA [Suspect]
     Dosage: 18 MCG
     Route: 048
     Dates: start: 20140408, end: 20140408

REACTIONS (3)
  - Urticaria [Not Recovered/Not Resolved]
  - Sleep disorder [Recovered/Resolved]
  - Incorrect route of drug administration [Recovered/Resolved]
